FAERS Safety Report 6430878-1 (Version None)
Quarter: 2009Q4

REPORT INFORMATION
  Report Type: 
  Country: None (occurrence: None)
  Receive Date: 20091105
  Receipt Date: 20091105
  Transmission Date: 20100525
  Serious: No
  Sender: FDA-Public Use
  Company Number: None

PATIENT
  Sex: Male
  Weight: 104.3273 kg

DRUGS (2)
  1. ZOLPIDEM [Suspect]
     Indication: INSOMNIA
     Dosage: 1 BEDTIME PO
     Route: 048
     Dates: start: 20091020, end: 20091021
  2. ZOLPIDEM [Suspect]
     Dosage: 1 BEDTME PO
     Route: 048
     Dates: start: 20091022, end: 20091024

REACTIONS (3)
  - PRODUCT MEASURED POTENCY ISSUE [None]
  - PRODUCT SUBSTITUTION ISSUE [None]
  - SLEEP DISORDER [None]
